FAERS Safety Report 5376730-4 (Version None)
Quarter: 2007Q3

REPORT INFORMATION
  Report Type: 
  Country: None (occurrence: None)
  Receive Date: 20070703
  Receipt Date: 20070628
  Transmission Date: 20080115
  Serious: Yes (Hospitalization, Disabling, Other)
  Sender: FDA-Public Use
  Company Number: US-BAYER-200711073BCC

PATIENT
  Age: 83 Year
  Sex: Male
  Weight: 61 kg

DRUGS (8)
  1. ASPIRIN [Suspect]
     Indication: STENT PLACEMENT
     Dosage: TOTAL DAILY DOSE: 325 MG  UNIT DOSE: 325 MG
     Route: 048
     Dates: start: 20030101
  2. PLAVIX [Suspect]
     Indication: STENT PLACEMENT
     Dosage: TOTAL DAILY DOSE: 75 MG  UNIT DOSE: 75 MG
     Route: 048
  3. PRILOSEC [Concomitant]
  4. LORAZEPAM [Concomitant]
     Dosage: TOTAL DAILY DOSE: 1. MG  UNIT DOSE: 0.5 MG
     Route: 048
  5. METOPROLOL SUCCINATE [Concomitant]
     Dosage: TOTAL DAILY DOSE: 50 MG  UNIT DOSE: 25 MG
     Route: 048
  6. ISORBIDE [Concomitant]
     Route: 048
  7. VICODIN [Concomitant]
     Indication: PAIN
     Route: 048
  8. ZOLOFT [Concomitant]
     Route: 048

REACTIONS (6)
  - AMNESIA [None]
  - APHASIA [None]
  - CEREBRAL HAEMORRHAGE [None]
  - DEMENTIA [None]
  - FRUSTRATION [None]
  - SPEECH DISORDER [None]
